FAERS Safety Report 19891476 (Version 4)
Quarter: 2022Q1

REPORT INFORMATION
  Report Type: Report from Study
  Country: CO (occurrence: CO)
  Receive Date: 20210927
  Receipt Date: 20220113
  Transmission Date: 20220423
  Serious: Yes (Other)
  Sender: FDA-Public Use
  Company Number: CO-NOVARTISPH-NVSC2021CO216096

PATIENT
  Sex: Male
  Weight: 88 kg

DRUGS (1)
  1. COSENTYX [Suspect]
     Active Substance: SECUKINUMAB
     Indication: Psoriasis
     Dosage: 300 MG, QMO
     Route: 058

REACTIONS (9)
  - Fracture [Unknown]
  - Bipolar disorder [Unknown]
  - Burning sensation [Unknown]
  - Fall [Unknown]
  - Inflammation [Unknown]
  - Limb injury [Unknown]
  - Pain in extremity [Unknown]
  - Skin disorder [Unknown]
  - Condition aggravated [Unknown]
